FAERS Safety Report 4562800-7 (Version None)
Quarter: 2005Q1

REPORT INFORMATION
  Report Type: 
  Country: None (occurrence: None)
  Receive Date: 20050127
  Receipt Date: 20041201
  Transmission Date: 20050727
  Serious: Yes (Other)
  Sender: FDA-Public Use
  Company Number: US-GLAXOSMITHKLINE-A0535749A

PATIENT
  Age: 80 Year
  Sex: Female

DRUGS (4)
  1. ADVAIR DISKUS 100/50 [Suspect]
     Indication: CHRONIC OBSTRUCTIVE PULMONARY DISEASE
     Dosage: 1PUFF TWICE PER DAY
     Route: 055
     Dates: start: 20020101
  2. CALCIUM GLUCONATE [Concomitant]
  3. VITAMIN D [Concomitant]
  4. NORVASC [Concomitant]

REACTIONS (6)
  - BONE DISORDER [None]
  - COUGH [None]
  - DRUG INEFFECTIVE [None]
  - NASOPHARYNGITIS [None]
  - RHINORRHOEA [None]
  - SPINAL FRACTURE [None]
